FAERS Safety Report 4562180-7 (Version None)
Quarter: 2005Q1

REPORT INFORMATION
  Report Type: 
  Country: None (occurrence: None)
  Receive Date: 20050124
  Receipt Date: 20050107
  Transmission Date: 20050727
  Serious: No
  Sender: FDA-Public Use
  Company Number: B0363805A

PATIENT
  Age: 41 Year
  Sex: Male

DRUGS (9)
  1. RETROVIR [Suspect]
     Indication: HIV INFECTION
  2. RISPERIDONE [Concomitant]
  3. GABAPENTIN [Concomitant]
  4. BENZTROPINE MESYLATE [Concomitant]
  5. EFFEXOR [Concomitant]
  6. ACYCLOVIR [Concomitant]
  7. IBUPROFEN [Concomitant]
  8. HYOSCINE HBR HYT [Concomitant]
  9. SALBUTAMOL SULPHATE [Concomitant]

REACTIONS (4)
  - CONDITION AGGRAVATED [None]
  - ERYTHEMA [None]
  - RELAPSING POLYCHONDRITIS [None]
  - THROAT TIGHTNESS [None]
